FAERS Safety Report 4962631-X (Version None)
Quarter: 2006Q1

REPORT INFORMATION
  Report Type: 
  Country: None (occurrence: None)
  Receive Date: 20060201
  Receipt Date: 20051107
  Transmission Date: 20060701
  Serious: No
  Sender: FDA-Public Use
  Company Number: 2005PV004099

PATIENT
  Age: 48 Year
  Sex: Female
  Weight: 163.2949 kg

DRUGS (6)
  1. BYETTA [Suspect]
     Indication: DIABETES MELLITUS NON-INSULIN-DEPENDENT
     Dosage: 5 MCG;BID;SC
     Route: 058
     Dates: start: 20050901, end: 20051001
  2. VYTORIN [Concomitant]
  3. AVAPRO [Concomitant]
  4. PHENOBARBITAL TAB [Concomitant]
  5. ZOLOFT [Concomitant]
  6. BUPRENEX [Concomitant]

REACTIONS (3)
  - DECREASED APPETITE [None]
  - ENERGY INCREASED [None]
  - WEIGHT DECREASED [None]
